FAERS Safety Report 8888643 (Version 1)
Quarter: 2012Q4

REPORT INFORMATION
  Report Type: 
  Country: JP (occurrence: JP)
  Receive Date: 20121106
  Receipt Date: 20121106
  Transmission Date: 20130627
  Serious: Yes (Hospitalization)
  Sender: FDA-Public Use
  Company Number: JP-009507513-1210JPN014304

PATIENT
  Sex: Male

DRUGS (2)
  1. PROPECIA [Suspect]
     Dosage: Daily dosage unknown
     Route: 048
  2. MINOXIDIL [Concomitant]
     Dosage: Daily dosage unknown
     Route: 065

REACTIONS (1)
  - Arrhythmia [Recovered/Resolved]
